FAERS Safety Report 18786161 (Version 1)
Quarter: 2021Q1

REPORT INFORMATION
  Report Type: Spontaneous
  Country: US (occurrence: US)
  Receive Date: 20210125
  Receipt Date: 20210125
  Transmission Date: 20210419
  Serious: Yes (Other)
  Sender: FDA-Public Use
  Company Number: None

PATIENT
  Age: 62 Year
  Sex: Male
  Weight: 59.38 kg

DRUGS (3)
  1. AVASTIN [Concomitant]
     Active Substance: BEVACIZUMAB
  2. LEUCOVORIN. [Concomitant]
     Active Substance: LEUCOVORIN
  3. OXALIPLATIN. [Suspect]
     Active Substance: OXALIPLATIN
     Indication: COLON CANCER
     Dates: start: 20200922, end: 20201027

REACTIONS (6)
  - Infusion site pruritus [None]
  - Infusion site rash [None]
  - Rash erythematous [None]
  - Diarrhoea [None]
  - Urticaria [None]
  - Infusion site urticaria [None]

NARRATIVE: CASE EVENT DATE: 20200922
